FAERS Safety Report 8024641 (Version 7)
Quarter: 2012Q4

REPORT INFORMATION
  Report Type: Report from Study
  Country: GB (occurrence: GB)
  Receive Date: 20110707
  Receipt Date: 20121213
  Transmission Date: 20130627
  Serious: Yes (Hospitalization)
  Sender: FDA-Public Use
  Company Number: GB-JNJFOC-20110612059

PATIENT
  Age: 15 None
  Sex: Female
  Weight: 45.9 kg

DRUGS (4)
  1. REMICADE [Suspect]
     Indication: CROHN^S DISEASE
     Route: 042
     Dates: start: 20081208, end: 20090807
  2. IRON DEXTRAN [Suspect]
     Indication: PRODUCT USED FOR UNKNOWN INDICATION
     Route: 051
  3. VITAMIN D [Concomitant]
     Route: 050
  4. HUMIRA [Concomitant]
     Dates: start: 20091002, end: 20110429

REACTIONS (2)
  - Anaphylactic reaction [Recovered/Resolved]
  - Panic attack [Unknown]
